FAERS Safety Report 7827248-8 (Version None)
Quarter: 2011Q4

REPORT INFORMATION
  Report Type: 
  Country: None (occurrence: None)
  Receive Date: 20111020
  Receipt Date: 20111017
  Transmission Date: 20120403
  Serious: Yes (Other)
  Sender: FDA-Public Use
  Company Number: DE-PFIZER INC-2011247436

PATIENT
  Age: 70 Year
  Sex: Female

DRUGS (1)
  1. LYRICA [Suspect]
     Dosage: 25 MG, 2X/DAY
     Dates: start: 20110901

REACTIONS (7)
  - DERMATITIS BULLOUS [None]
  - VISION BLURRED [None]
  - MEMORY IMPAIRMENT [None]
  - ERYTHEMA [None]
  - FEELING COLD [None]
  - CONFUSIONAL STATE [None]
  - ABDOMINAL DISTENSION [None]
